FAERS Safety Report 14595712 (Version 1)
Quarter: 2018Q1

REPORT INFORMATION
  Report Type: Spontaneous
  Country: US (occurrence: US)
  Receive Date: 20180303
  Receipt Date: 20180303
  Transmission Date: 20180509
  Serious: Yes (Hospitalization)
  Sender: FDA-Public Use
  Company Number: US-AUROBINDO-AUR-APU-2018-003279

PATIENT
  Sex: Female
  Weight: 101 kg

DRUGS (3)
  1. PREDNISONE. [Concomitant]
     Active Substance: PREDNISONE
     Indication: PRODUCT USED FOR UNKNOWN INDICATION
  2. MOXIFLOXACIN HYDROCHLORIDE TABLETS 400MG [Suspect]
     Active Substance: MOXIFLOXACIN HYDROCHLORIDE
     Indication: SINUSITIS
  3. MOXIFLOXACIN HYDROCHLORIDE TABLETS 400MG [Suspect]
     Active Substance: MOXIFLOXACIN HYDROCHLORIDE
     Indication: BRONCHITIS
     Dosage: 1 DF, ONCE A DAY
     Route: 065

REACTIONS (2)
  - Pruritus [Not Recovered/Not Resolved]
  - Abdominal discomfort [Unknown]
